FAERS Safety Report 22532525 (Version 1)
Quarter: 2023Q2

REPORT INFORMATION
  Report Type: Spontaneous
  Country: JP (occurrence: JP)
  Receive Date: 20230607
  Receipt Date: 20230607
  Transmission Date: 20230721
  Serious: Yes (Other)
  Sender: FDA-Public Use
  Company Number: JP-SUNOVION-2023SMP008875

PATIENT
  Age: 7 Decade
  Sex: Female

DRUGS (9)
  1. LATUDA [Suspect]
     Active Substance: LURASIDONE HYDROCHLORIDE
     Indication: Schizophrenia
     Dosage: 40 MG, QD
     Route: 048
  2. LATUDA [Suspect]
     Active Substance: LURASIDONE HYDROCHLORIDE
     Dosage: 80 MG, QD
     Route: 048
  3. ZOLPIDEM TARTRATE [Suspect]
     Active Substance: ZOLPIDEM TARTRATE
     Indication: Product used for unknown indication
     Dosage: 10 MG, QD
     Route: 048
  4. BLONANSERIN [Suspect]
     Active Substance: BLONANSERIN
     Indication: Schizophrenia
     Dosage: 8 MG, QD
     Route: 048
  5. BLONANSERIN [Suspect]
     Active Substance: BLONANSERIN
     Dosage: 16 MG, QD
     Route: 048
  6. BLONANSERIN [Suspect]
     Active Substance: BLONANSERIN
     Dosage: 24 MG, QD
     Route: 048
  7. BLONANSERIN [Suspect]
     Active Substance: BLONANSERIN
     Dosage: 8 MG, QD
     Route: 048
  8. OLANZAPINE [Suspect]
     Active Substance: OLANZAPINE
     Indication: Product used for unknown indication
     Dosage: 5 MG, QD
     Route: 065
  9. OLANZAPINE [Suspect]
     Active Substance: OLANZAPINE
     Dosage: 10 MG, QD
     Route: 065

REACTIONS (4)
  - Hallucination [Unknown]
  - Parkinsonism [Unknown]
  - Salivary hypersecretion [Unknown]
  - Insomnia [Unknown]
